FAERS Safety Report 4556373-2 (Version None)
Quarter: 2005Q1

REPORT INFORMATION
  Report Type: 
  Country: None (occurrence: None)
  Receive Date: 20050103
  Receipt Date: 20040823
  Transmission Date: 20050727
  Serious: Yes (Other)
  Sender: FDA-Public Use
  Company Number: 2004UW17802

PATIENT
  Age: 62 Year
  Sex: Male
  Weight: 87.9978 kg

DRUGS (2)
  1. CRESTOR [Suspect]
     Indication: BLOOD TRIGLYCERIDES INCREASED
     Dosage: 10 MG PO
     Route: 048
     Dates: start: 20040801
  2. BEXTRA [Concomitant]

REACTIONS (1)
  - DYSURIA [None]
